FAERS Safety Report 10045305 (Version 2)
Quarter: 2014Q2

REPORT INFORMATION
  Report Type: Report from Study
  Country: US (occurrence: US)
  Receive Date: 20140328
  Receipt Date: 20140430
  Transmission Date: 20141212
  Serious: Yes (Hospitalization)
  Sender: FDA-Public Use
  Company Number: US-B.I. PHARMACEUTICALS,INC./RIDGEFIELD-2014-BI-12186II

PATIENT
  Age: 48 Year
  Sex: Female
  Weight: 82.1 kg

DRUGS (21)
  1. BIBW 2992 [Suspect]
     Indication: SQUAMOUS CELL CARCINOMA
     Dosage: 30 MG
     Route: 048
     Dates: start: 20131104, end: 20131117
  2. BIBW 2992 [Suspect]
     Dosage: 30 MG
     Route: 048
     Dates: start: 20131118, end: 20131120
  3. REGLAN 10 MG [Concomitant]
     Dosage: 8 ANZ
     Route: 048
  4. PHENERGAN 25 MG [Concomitant]
     Dosage: 6 ANZ
     Route: 048
  5. ALEVE 200 MG [Concomitant]
     Indication: PAIN
     Dosage: DOSE PER APPLICATION: TABLET OF 200 MG EACH
     Route: 048
  6. BISOPROLOL-HYDROCHLOROTHIAZIDE [Concomitant]
     Dosage: 1 ANZ
     Route: 048
  7. CLARITIN 10 MG [Concomitant]
     Dosage: 10 MG
     Route: 048
  8. DEXAMETHASONE 4 MG [Concomitant]
     Dosage: 16 MG
     Route: 048
  9. FAMOTIDINE 20 MG [Concomitant]
     Dosage: 40 MG
     Route: 048
  10. LIDOCAINE-PRILOCAINE [Concomitant]
     Dosage: 2.5 PERCENT - 2.5 PERCENT APPLY OVER PORT SITE 30 TO 60 MINUTES BEFORE SCHEDULED LAB/CHEMO TIME AND
     Route: 061
  11. OMEPRAZOLE [Concomitant]
     Dosage: 40 MG
     Route: 048
  12. ONDANSETRON HCL [Concomitant]
     Dosage: 24 MG
     Route: 048
  13. PROAIR HFA [Concomitant]
     Route: 065
  14. PROAIR HFA 90 MCG [Concomitant]
     Dosage: 12 PUF
     Route: 055
  15. TRANSDERM-SCOP 1.5 MG [Concomitant]
     Dosage: 0.5 MG
     Route: 062
  16. CARBOPLATIN AUC [Concomitant]
     Dosage: DOSE PER APPLICATION: 6
     Route: 042
     Dates: start: 20131118, end: 20131120
  17. PACLITAXEL [Concomitant]
     Dosage: DOSE PER APPLICATION: 175MG/M2
     Route: 042
     Dates: start: 20131118, end: 20131120
  18. TUMS [Concomitant]
     Route: 048
  19. FENTANYL [Concomitant]
     Dosage: FORMULATION: PATCH, DAILY DOSE: 50 MCG / HR
     Route: 062
  20. FENTANYL [Concomitant]
     Dosage: 0.3333 ANZ
     Route: 062
  21. MORPHINE 20MG / ML [Concomitant]
     Indication: PAIN
     Dosage: 8 ML
     Route: 048

REACTIONS (6)
  - Abdominal pain [Unknown]
  - Diarrhoea [Recovered/Resolved]
  - Urinary tract infection [Unknown]
  - Sepsis [Unknown]
  - Pneumonia [Unknown]
  - Pancytopenia [Unknown]
